FAERS Safety Report 8940488 (Version 3)
Quarter: 2015Q2

REPORT INFORMATION
  Report Type: Report from Study
  Country: FR (occurrence: FR)
  Receive Date: 20121203
  Receipt Date: 20150507
  Transmission Date: 20150821
  Serious: Yes (Other)
  Sender: FDA-Public Use
  Company Number: FR-ROCHE-1162665

PATIENT
  Age: 74 Year
  Sex: Female

DRUGS (7)
  1. CORTANCYL [Concomitant]
     Active Substance: PREDNISONE
  2. CERTOLIZUMAB [Concomitant]
     Active Substance: CERTOLIZUMAB
  3. RITUXIMAB [Suspect]
     Active Substance: RITUXIMAB
     Indication: RHEUMATOID ARTHRITIS
     Route: 042
     Dates: start: 20061208
  4. RITUXIMAB [Suspect]
     Active Substance: RITUXIMAB
     Route: 042
     Dates: start: 20061222, end: 20070828
  5. METOJECT [Concomitant]
     Active Substance: METHOTREXATE SODIUM
     Route: 065
  6. ENBREL [Concomitant]
     Active Substance: ETANERCEPT
  7. HUMIRA [Suspect]
     Active Substance: ADALIMUMAB
     Indication: RHEUMATOID ARTHRITIS
     Route: 065
     Dates: start: 2009, end: 20120511

REACTIONS (8)
  - Adrenal insufficiency [Not Recovered/Not Resolved]
  - Skin reaction [Not Recovered/Not Resolved]
  - Tooth infection [Unknown]
  - Abdominal pain upper [Unknown]
  - Basal cell carcinoma [Unknown]
  - Cerumen impaction [Not Recovered/Not Resolved]
  - Dysphagia [Not Recovered/Not Resolved]
  - Injection site reaction [Not Recovered/Not Resolved]

NARRATIVE: CASE EVENT DATE: 2009
